FAERS Safety Report 20944735 (Version 5)
Quarter: 2022Q3

REPORT INFORMATION
  Report Type: Report from Study
  Country: US (occurrence: US)
  Receive Date: 20220610
  Receipt Date: 20220901
  Transmission Date: 20221027
  Serious: Yes (Life-Threatening, Hospitalization, Other)
  Sender: FDA-Public Use
  Company Number: US-BRISTOL-MYERS SQUIBB COMPANY-2022-050552

PATIENT
  Age: 77 Year
  Sex: Male
  Weight: 64.86 kg

DRUGS (17)
  1. AZACITIDINE [Suspect]
     Active Substance: AZACITIDINE
     Indication: Myelodysplastic syndrome
     Dosage: 50MG/M2=92.5MG , D1-D5 EVERY 4 WEEKS, (CYCLE D1C1 TO D3C4)
     Route: 058
     Dates: start: 20210322
  2. AZACITIDINE [Suspect]
     Active Substance: AZACITIDINE
     Dosage: (D4C4)
     Route: 058
  3. AZACITIDINE [Suspect]
     Active Substance: AZACITIDINE
     Dosage: (D1C5 TO D5C5)
     Route: 058
  4. AZACITIDINE [Suspect]
     Active Substance: AZACITIDINE
     Dosage: (D1C6 TO D5C6)
     Route: 058
  5. AZACITIDINE [Suspect]
     Active Substance: AZACITIDINE
     Dosage: (D2C7)
     Route: 058
  6. AZACITIDINE [Suspect]
     Active Substance: AZACITIDINE
     Dosage: (D2C7)
     Route: 058
  7. AZACITIDINE [Suspect]
     Active Substance: AZACITIDINE
     Dosage: (D3C7)
     Route: 058
  8. AZACITIDINE [Suspect]
     Active Substance: AZACITIDINE
     Dosage: (D4C7)
     Route: 058
  9. AZACITIDINE [Suspect]
     Active Substance: AZACITIDINE
     Dosage: (D5C7)
     Route: 058
     Dates: end: 20211001
  10. FISH OIL [Concomitant]
     Active Substance: FISH OIL
  11. VITAMIN B12 [Concomitant]
     Active Substance: CYANOCOBALAMIN
     Dosage: ONCE DAILY
     Route: 048
     Dates: start: 20170314
  12. VITAMIN C [Concomitant]
     Active Substance: ASCORBIC ACID
     Route: 048
     Dates: start: 20170314
  13. VITAMIN E [Concomitant]
     Active Substance: .ALPHA.-TOCOPHEROL
     Dosage: 1000 UNITS
     Route: 048
     Dates: start: 20170712
  14. POTASSIUM CHLORIDE [Concomitant]
     Active Substance: POTASSIUM CHLORIDE
     Indication: Hypokalaemia
     Route: 048
     Dates: start: 20211021
  15. DIFLUCAN [Concomitant]
     Active Substance: FLUCONAZOLE
     Indication: Pneumonia
     Route: 048
     Dates: start: 20211014, end: 20211211
  16. ISOSORBIDE [Concomitant]
     Active Substance: ISOSORBIDE
     Indication: Hypertension
     Dosage: 30 MG ONCE QD (PRIOR TO 2020)
     Route: 048
  17. LIPITOR [Concomitant]
     Active Substance: ATORVASTATIN CALCIUM
     Indication: Hyperlipidaemia
     Route: 048

REACTIONS (5)
  - Prostatic abscess [Recovered/Resolved]
  - Urinary tract infection [Recovered/Resolved]
  - Pneumonia [Recovered/Resolved]
  - Malignant neoplasm progression [Unknown]
  - Off label use [Unknown]

NARRATIVE: CASE EVENT DATE: 20210322
